FAERS Safety Report 4668676-1 (Version None)
Quarter: 2005Q2

REPORT INFORMATION
  Report Type: 
  Country: None (occurrence: None)
  Receive Date: 20050523
  Receipt Date: 20041115
  Transmission Date: 20051028
  Serious: Yes (Other)
  Sender: FDA-Public Use
  Company Number: PHEH2004US12303

PATIENT
  Age: 56 Year
  Sex: Male

DRUGS (8)
  1. LIDOCAINE [Concomitant]
     Indication: ANAESTHESIA
  2. ALLOPURINOL [Concomitant]
     Indication: GOUT
  3. AMITRIPTYLINE [Concomitant]
  4. TYLENOL (CAPLET) [Concomitant]
     Indication: PAIN
  5. PREVACID [Concomitant]
     Indication: GASTROOESOPHAGEAL REFLUX DISEASE
  6. INSULIN [Concomitant]
     Indication: DIABETES MELLITUS
  7. ZOLEDRONATE [Suspect]
     Indication: MULTIPLE MYELOMA
     Dosage: 4 MG EVERY 2 MONTHS
     Dates: start: 20020422
  8. PREDNISONE [Concomitant]
     Indication: MULTIPLE MYELOMA
     Dosage: USUALLY 10-30 MG QD

REACTIONS (6)
  - DENTAL OPERATION [None]
  - IMPAIRED HEALING [None]
  - OSTEONECROSIS [None]
  - SKIN GRAFT [None]
  - TOOTH EXTRACTION [None]
  - WOUND DEBRIDEMENT [None]
